FAERS Safety Report 5103264-4 (Version None)
Quarter: 2006Q3

REPORT INFORMATION
  Report Type: 
  Country: None (occurrence: None)
  Receive Date: 20060913
  Receipt Date: 20060829
  Transmission Date: 20061208
  Serious: Yes (Other)
  Sender: FDA-Public Use
  Company Number: 2006GB01549

PATIENT
  Age: 58 Year
  Sex: Male

DRUGS (6)
  1. OMEPRAZOLE [Suspect]
     Route: 065
  2. AMITRIPTYLINE HYDROCHLORIDE [Suspect]
  3. DEXAMETHASONE TAB [Suspect]
  4. RITUXIMAB [Suspect]
     Dates: start: 20060619, end: 20060619
  5. VFEND [Suspect]
  6. ZOPICLONE [Suspect]

REACTIONS (3)
  - AGITATION [None]
  - AMNESIA [None]
  - CONFUSIONAL STATE [None]
